FAERS Safety Report 21467464 (Version 1)
Quarter: 2022Q4

REPORT INFORMATION
  Report Type: Report from Study
  Country: FR (occurrence: FR)
  Receive Date: 20221017
  Receipt Date: 20221017
  Transmission Date: 20230113
  Serious: Yes (Death, Hospitalization, Other)
  Sender: FDA-Public Use
  Company Number: BE-BoehringerIngelheim-2019-BI-030686

PATIENT
  Age: 70 Year
  Sex: Male
  Weight: 58.8 kg

DRUGS (4)
  1. AFATINIB [Suspect]
     Active Substance: AFATINIB
     Indication: Squamous cell carcinoma of head and neck
     Route: 048
     Dates: start: 20190618
  2. AFATINIB [Suspect]
     Active Substance: AFATINIB
     Route: 048
  3. AFATINIB [Suspect]
     Active Substance: AFATINIB
     Route: 048
     Dates: end: 20190806
  4. AFATINIB [Suspect]
     Active Substance: AFATINIB
     Route: 048

REACTIONS (5)
  - Malignant neoplasm progression [Fatal]
  - Vomiting [Not Recovered/Not Resolved]
  - Diarrhoea [Recovered/Resolved]
  - Nausea [Recovered/Resolved]
  - Diarrhoea [Recovered/Resolved]

NARRATIVE: CASE EVENT DATE: 20190711
